FAERS Safety Report 6080432-9 (Version None)
Quarter: 2009Q1

REPORT INFORMATION
  Report Type: 
  Country: None (occurrence: None)
  Receive Date: 20090217
  Receipt Date: 20090209
  Transmission Date: 20090719
  Serious: Yes (Other)
  Sender: FDA-Public Use
  Company Number: PHEH2009US01533

PATIENT
  Sex: Male
  Weight: 91 kg

DRUGS (3)
  1. GLEEVEC [Suspect]
     Indication: CHRONIC MYELOID LEUKAEMIA
     Dosage: 400 MG, QD
     Route: 048
     Dates: start: 20060512
  2. IBUPROFEN [Concomitant]
     Indication: PAIN
     Dosage: 200-600 MG BID
     Route: 048
     Dates: start: 20080401
  3. VITAMIN D [Concomitant]
     Dosage: UNK
     Route: 048
     Dates: start: 20080801

REACTIONS (8)
  - ALANINE AMINOTRANSFERASE INCREASED [None]
  - ALDOLASE INCREASED [None]
  - ASPARTATE AMINOTRANSFERASE INCREASED [None]
  - BACK PAIN [None]
  - BLOOD CREATINE PHOSPHOKINASE INCREASED [None]
  - MUSCLE SPASMS [None]
  - MYOSITIS [None]
  - PAIN IN EXTREMITY [None]
